FAERS Safety Report 24096561 (Version 2)
Quarter: 2024Q3

REPORT INFORMATION
  Report Type: Spontaneous
  Country: JP (occurrence: JP)
  Receive Date: 20240716
  Receipt Date: 20240802
  Transmission Date: 20241017
  Serious: Yes (Other)
  Sender: AMGEN
  Company Number: JP-AMGEN-JPNSP2024013664

PATIENT
  Age: 83 Year
  Sex: Female

DRUGS (3)
  1. REPATHA [Suspect]
     Active Substance: EVOLOCUMAB
     Indication: Dyslipidaemia
     Dosage: 420 MILLIGRAM, Q4WK
     Route: 058
     Dates: start: 20230613, end: 202310
  2. REPATHA [Suspect]
     Active Substance: EVOLOCUMAB
     Dosage: 420 MILLIGRAM, Q4WK
     Route: 058
     Dates: start: 20231128, end: 20231225
  3. PREDONINE [Concomitant]
     Active Substance: PREDNISOLONE
     Indication: Polymyalgia rheumatica
     Dosage: 12.5 MILLIGRAM
     Dates: start: 20240427

REACTIONS (3)
  - Polymyalgia rheumatica [Unknown]
  - Blood lactate dehydrogenase increased [Recovering/Resolving]
  - Pruritus [Recovering/Resolving]

NARRATIVE: CASE EVENT DATE: 20230601
